FAERS Safety Report 9131662 (Version 4)
Quarter: 2013Q3

REPORT INFORMATION
  Report Type: Spontaneous
  Country: JP (occurrence: JP)
  Receive Date: 20130301
  Receipt Date: 20130827
  Transmission Date: 20140515
  Serious: No
  Sender: FDA-Public Use
  Company Number: JP-SANTEN INC.-INC-13-000076

PATIENT
  Age: 63 Year
  Sex: Male

DRUGS (1)
  1. CRAVIT (LEVOFLOXACIN 1.5%) [Suspect]
     Route: 061
     Dates: start: 20130207, end: 20130207

REACTIONS (1)
  - Conjunctival oedema [Recovered/Resolved]
